FAERS Safety Report 5936253-8 (Version None)
Quarter: 2008Q4

REPORT INFORMATION
  Report Type: 
  Country: None (occurrence: None)
  Receive Date: 20081030
  Receipt Date: 20080801
  Transmission Date: 20090506
  Serious: No
  Sender: FDA-Public Use
  Company Number: A0740749A

PATIENT
  Age: 61 Year
  Sex: Male

DRUGS (6)
  1. SEREVENT [Suspect]
     Indication: DRUG USE FOR UNKNOWN INDICATION
     Dosage: 50MCG TWICE PER DAY
     Route: 055
     Dates: start: 20080723
  2. AEROBID [Concomitant]
  3. OLANZAPINE [Concomitant]
  4. PREGABALIN [Concomitant]
  5. LORAZEPAM [Concomitant]
  6. FLUNISOLIDE [Concomitant]

REACTIONS (5)
  - BACK PAIN [None]
  - MUSCLE SPASMS [None]
  - MUSCLE TIGHTNESS [None]
  - MUSCULOSKELETAL STIFFNESS [None]
  - PAIN IN EXTREMITY [None]
